FAERS Safety Report 9462218 (Version 1)
Quarter: 2013Q3

REPORT INFORMATION
  Report Type: Spontaneous
  Country: US (occurrence: None)
  Receive Date: 20130815
  Receipt Date: 20130815
  Transmission Date: 20140515
  Serious: Yes (Life-Threatening, Hospitalization)
  Sender: FDA-Public Use
  Company Number: None

PATIENT
  Age: 37 Year
  Sex: Male
  Weight: 80.3 kg

DRUGS (1)
  1. VYVANSE 70 MG SHIRE [Suspect]
     Indication: ATTENTION DEFICIT/HYPERACTIVITY DISORDER
     Dosage: 1 CAPSULE, BID, ORAL
     Route: 048
     Dates: start: 20130325, end: 20130802

REACTIONS (2)
  - Cardiac failure congestive [None]
  - Left ventricular dysfunction [None]
